FAERS Safety Report 7584189-1 (Version None)
Quarter: 2011Q2

REPORT INFORMATION
  Report Type: 
  Country: None (occurrence: None)
  Receive Date: 20110630
  Receipt Date: 20110610
  Transmission Date: 20111010
  Serious: Yes (Death)
  Sender: FDA-Public Use
  Company Number: US-BRISTOL-MYERS SQUIBB COMPANY-15238447

PATIENT
  Age: 68 Year
  Sex: Female
  Weight: 65 kg

DRUGS (21)
  1. FLUCONAZOLE [Concomitant]
     Dates: start: 20100714, end: 20100721
  2. PIPERACILLIN AND TAZOBACTAM [Concomitant]
     Dates: start: 20100714, end: 20100722
  3. VITAMIN K TAB [Concomitant]
     Dates: start: 20100714
  4. METRONIDAZOLE [Concomitant]
     Dates: start: 20100714
  5. SODIUM CHLORIDE [Concomitant]
     Dates: start: 20100714
  6. METHYLPREDNISOLONE [Concomitant]
     Dates: start: 20100719, end: 20100719
  7. FUROSEMIDE [Concomitant]
     Dates: start: 20100719, end: 20100719
  8. GLYBURIDE [Concomitant]
     Dates: start: 20100714
  9. IRBESARTAN + HYDROCHLOROTHIAZIDE [Suspect]
     Dates: start: 20100714
  10. PRAVASTATIN [Concomitant]
     Dates: start: 20021212, end: 20100718
  11. ANIDULAFUNGIN [Concomitant]
     Indication: BRONCHOPULMONARY ASPERGILLOSIS
     Route: 042
     Dates: start: 20100721, end: 20100722
  12. ACETAMINOPHEN [Concomitant]
     Dates: start: 20100714
  13. AMIKACIN [Concomitant]
     Dates: start: 20100714, end: 20100719
  14. PICLOXYDINE [Concomitant]
     Dates: start: 20100718, end: 20100718
  15. VORICONAZOLE [Concomitant]
     Indication: BRONCHOPULMONARY ASPERGILLOSIS
     Dosage: R1:18JUL2010,360MG;R2:200MG BID 19JUL TO 20JUL2010; R3:260MG QD 21JUL2010-22JUL10
     Route: 042
     Dates: start: 20100718, end: 20100722
  16. VANCOMYCIN [Concomitant]
     Dates: start: 20100714
  17. ACYCLOVIR [Concomitant]
     Dates: start: 20100715
  18. INSULIN [Concomitant]
     Dates: start: 20100714
  19. CORGARD [Suspect]
     Indication: HYPERTENSION
     Route: 048
     Dates: start: 20070101
  20. ESOMEPRAZOLE MAGNESIUM [Concomitant]
     Dates: start: 20100708, end: 20100717
  21. POTASSIUM CHLORIDE [Concomitant]
     Dates: start: 20100714, end: 20100722

REACTIONS (3)
  - HYPOTENSION [None]
  - BRADYCARDIA [None]
  - BLOOD POTASSIUM INCREASED [None]
